FAERS Safety Report 6859650-5 (Version None)
Quarter: 2010Q3

REPORT INFORMATION
  Report Type: 
  Country: None (occurrence: None)
  Receive Date: 20100719
  Receipt Date: 20100713
  Transmission Date: 20110219
  Serious: Yes (Hospitalization)
  Sender: FDA-Public Use
  Company Number: US-B.I. PHARMACEUTICALS,INC./RIDGEFIELD-2010-BP-07391BP

PATIENT
  Age: 72 Year
  Sex: Male

DRUGS (9)
  1. FLOMAX [Suspect]
     Indication: BENIGN PROSTATIC HYPERPLASIA
     Dosage: 0.4 MG
     Route: 048
     Dates: start: 20050101
  2. FLOMAX [Suspect]
     Indication: PROSTATOMEGALY
  3. GLYBURIDE [Concomitant]
     Indication: DIABETES MELLITUS
     Route: 048
  4. JANUVIA [Concomitant]
     Indication: DIABETES MELLITUS
     Route: 048
  5. AMLODIPINE [Concomitant]
     Indication: HYPERTENSION
     Route: 048
  6. SIMVASTATIN [Concomitant]
     Indication: BLOOD CHOLESTEROL INCREASED
     Route: 048
  7. ENALAPRIL MALEATE [Concomitant]
     Indication: DIABETES MELLITUS
     Route: 048
  8. LASIX [Concomitant]
     Indication: FLUID RETENTION
     Route: 048
  9. PLAVIX [Concomitant]

REACTIONS (1)
  - MYOCARDIAL INFARCTION [None]
